FAERS Safety Report 24906372 (Version 1)
Quarter: 2025Q1

REPORT INFORMATION
  Report Type: Spontaneous
  Country: HU (occurrence: HU)
  Receive Date: 20250130
  Receipt Date: 20250130
  Transmission Date: 20250408
  Serious: Yes (Other)
  Sender: TEVA
  Company Number: HU-002147023-NVSC2021HU020013

PATIENT
  Age: 66 Year
  Sex: Female

DRUGS (78)
  1. DICLOFENAC [Suspect]
     Active Substance: DICLOFENAC
     Indication: Product used for unknown indication
     Route: 065
  2. OLOPATADINE [Suspect]
     Active Substance: OLOPATADINE
     Indication: Product used for unknown indication
     Route: 065
  3. CROMOLYN SODIUM [Suspect]
     Active Substance: CROMOLYN SODIUM
     Indication: Product used for unknown indication
     Route: 065
  4. VIGAMOX [Suspect]
     Active Substance: MOXIFLOXACIN HYDROCHLORIDE
     Indication: Product used for unknown indication
     Route: 065
  5. NEOMYCIN [Suspect]
     Active Substance: NEOMYCIN
     Indication: Product used for unknown indication
     Route: 065
  6. CILOXAN [Suspect]
     Active Substance: CIPROFLOXACIN HYDROCHLORIDE
     Indication: Product used for unknown indication
     Route: 065
  7. TOBREX [Suspect]
     Active Substance: TOBRAMYCIN
     Indication: Product used for unknown indication
     Route: 065
  8. CATAFLAM [Suspect]
     Active Substance: DICLOFENAC POTASSIUM
     Indication: Product used for unknown indication
     Route: 065
  9. CALCIUM DOBESILATE [Suspect]
     Active Substance: CALCIUM DOBESILATE
     Indication: Product used for unknown indication
     Route: 065
     Dates: start: 20030811
  10. TOBRADEX [Suspect]
     Active Substance: DEXAMETHASONE\TOBRAMYCIN
     Indication: Conjunctivitis
     Route: 065
  11. LAMISIL [Suspect]
     Active Substance: TERBINAFINE HYDROCHLORIDE
     Indication: Product used for unknown indication
     Route: 065
  12. CLINDAMYCIN [Suspect]
     Active Substance: CLINDAMYCIN
     Indication: Peripheral swelling
     Route: 065
  13. CALCIUM\CHOLECALCIFEROL [Suspect]
     Active Substance: CALCIUM\CHOLECALCIFEROL
     Indication: Product used for unknown indication
     Route: 065
  14. PIROXICAM BETADEX [Concomitant]
     Active Substance: PIROXICAM BETADEX
     Indication: Product used for unknown indication
     Route: 065
  15. SULFAMETHOXAZOLE\TRIMETHOPRIM [Concomitant]
     Active Substance: SULFAMETHOXAZOLE\TRIMETHOPRIM
     Indication: Product used for unknown indication
     Route: 065
  16. SACERNO [Concomitant]
     Indication: Epilepsy
     Route: 065
  17. TINIDAZOLE POLPHARMA [Concomitant]
     Indication: Product used for unknown indication
     Route: 065
  18. DUMOXIN [Concomitant]
     Indication: Product used for unknown indication
     Route: 065
  19. HUMALAC B [Concomitant]
     Indication: Product used for unknown indication
     Route: 065
  20. PHENOLPHTHALEIN [Concomitant]
     Active Substance: PHENOLPHTHALEIN
     Indication: Product used for unknown indication
     Route: 065
  21. SEROPRAM [Concomitant]
     Indication: Product used for unknown indication
     Route: 065
  22. OCUTEARS [Concomitant]
     Indication: Product used for unknown indication
     Route: 065
  23. OCULOHEEL [Concomitant]
     Indication: Product used for unknown indication
     Route: 065
  24. SYSTANE (HYPROMELLOSE 2910 (4000 MPA.S)) [Concomitant]
     Active Substance: HYPROMELLOSE 2910 (4000 MPA.S)
     Indication: Product used for unknown indication
     Route: 065
  25. MOTILIUM [Concomitant]
     Active Substance: DOMPERIDONE
     Indication: Product used for unknown indication
     Route: 065
  26. SYSTANE ULTRA [Concomitant]
     Active Substance: POLYETHYLENE GLYCOL 400\PROPYLENE GLYCOL
     Indication: Product used for unknown indication
     Route: 065
  27. TETRAN [Concomitant]
     Indication: Product used for unknown indication
     Route: 065
  28. DICLOFENAC EPOLAMINE [Concomitant]
     Active Substance: DICLOFENAC EPOLAMINE
     Indication: Product used for unknown indication
     Route: 065
  29. SEPTOSYL [Concomitant]
     Indication: Product used for unknown indication
     Route: 065
  30. AMOXICILLIN [Concomitant]
     Active Substance: AMOXICILLIN
     Indication: Product used for unknown indication
     Route: 065
  31. TETRAHYDROZOLINE HYDROCHLORIDE [Concomitant]
     Active Substance: TETRAHYDROZOLINE HYDROCHLORIDE
     Indication: Product used for unknown indication
     Route: 065
  32. RENNIE [Concomitant]
     Indication: Reflux gastritis
     Route: 065
  33. NEOGRANORMON [Concomitant]
     Indication: Product used for unknown indication
     Route: 065
  34. FLUCONAZOLE [Concomitant]
     Active Substance: FLUCONAZOLE
     Indication: Product used for unknown indication
     Route: 065
  35. SEDUXEN [Concomitant]
     Indication: Product used for unknown indication
     Route: 065
  36. ACTIVON [Concomitant]
     Indication: Product used for unknown indication
     Route: 065
  37. PENAMECILLIN [Concomitant]
     Active Substance: PENAMECILLIN
     Indication: Product used for unknown indication
     Route: 065
  38. CANDIBENE [Concomitant]
     Indication: Product used for unknown indication
     Route: 065
  39. GENTEAL MILD [Concomitant]
     Active Substance: HYPROMELLOSE 2910 (4000 MPA.S)
     Indication: Product used for unknown indication
     Route: 065
  40. AFLAMIN [Concomitant]
     Indication: Product used for unknown indication
     Route: 065
  41. DALACIN [Concomitant]
     Indication: Product used for unknown indication
     Route: 065
  42. RIFAXIMIN [Concomitant]
     Active Substance: RIFAXIMIN
     Indication: Product used for unknown indication
     Route: 065
  43. CLARITHROMYCIN [Concomitant]
     Active Substance: CLARITHROMYCIN
     Indication: Product used for unknown indication
     Route: 065
  44. DOXYCYCLIN-CHINOIN [Concomitant]
     Indication: Product used for unknown indication
     Route: 065
  45. KLION [Concomitant]
     Indication: Product used for unknown indication
     Route: 065
  46. SPORANOX [Concomitant]
     Active Substance: ITRACONAZOLE
     Indication: Product used for unknown indication
     Route: 065
  47. CARBOMER [Concomitant]
     Active Substance: CARBOMER
     Indication: Product used for unknown indication
     Route: 065
  48. DIVASCAN [Concomitant]
     Indication: Product used for unknown indication
     Route: 065
  49. MAGNESIUM [Concomitant]
     Active Substance: MAGNESIUM
     Indication: Product used for unknown indication
     Route: 065
  50. LORATADINE [Concomitant]
     Active Substance: LORATADINE
     Indication: Product used for unknown indication
     Route: 065
  51. ARTELAC [Concomitant]
     Indication: Product used for unknown indication
     Route: 065
  52. LEVOFLOXACIN [Concomitant]
     Active Substance: LEVOFLOXACIN
     Indication: Product used for unknown indication
     Route: 065
  53. LEVOFLOXACIN [Concomitant]
     Active Substance: LEVOFLOXACIN
     Indication: Product used for unknown indication
  54. NIMESULIDE [Concomitant]
     Active Substance: NIMESULIDE
     Indication: Product used for unknown indication
     Route: 065
  55. BETAMETHASONE DIPROPIONATE [Concomitant]
     Active Substance: BETAMETHASONE DIPROPIONATE
     Indication: Product used for unknown indication
     Route: 065
  56. FLOXAL [Concomitant]
     Active Substance: OFLOXACIN
     Indication: Product used for unknown indication
     Route: 065
  57. RIVOTRIL [Concomitant]
     Active Substance: CLONAZEPAM
     Indication: Product used for unknown indication
     Route: 065
  58. RIVOTRIL [Concomitant]
     Active Substance: CLONAZEPAM
     Indication: Product used for unknown indication
  59. MAGNE B6 [Concomitant]
     Active Substance: MAGNESIUM\PYRIDOXINE
     Indication: Product used for unknown indication
     Route: 065
  60. DONA [Concomitant]
     Active Substance: EUCALYPTUS OIL\MENTHOL
     Indication: Product used for unknown indication
     Route: 065
  61. ETODOLAC [Concomitant]
     Active Substance: ETODOLAC
     Indication: Product used for unknown indication
     Route: 065
  62. CLOTRIMAZOLE [Concomitant]
     Active Substance: CLOTRIMAZOLE
     Indication: Product used for unknown indication
     Route: 065
  63. METOPROLOL [Concomitant]
     Active Substance: METOPROLOL
     Indication: Product used for unknown indication
     Route: 065
  64. FLECTOR [Concomitant]
     Active Substance: DICLOFENAC EPOLAMINE
     Indication: Product used for unknown indication
     Route: 065
  65. FAMOTIDINE [Concomitant]
     Active Substance: FAMOTIDINE
     Indication: Product used for unknown indication
     Route: 065
  66. REFRESH CLASSIC [Concomitant]
     Active Substance: POLYVINYL ALCOHOL\POVIDONE
     Indication: Product used for unknown indication
     Route: 065
  67. XANAX [Concomitant]
     Active Substance: ALPRAZOLAM
     Indication: Product used for unknown indication
     Route: 065
  68. MONURAL [Concomitant]
     Indication: Product used for unknown indication
     Route: 065
  69. ALPRAZOLAM [Concomitant]
     Active Substance: ALPRAZOLAM
     Indication: Product used for unknown indication
     Route: 065
  70. CARBOXYMETHYLCELLULOSE SODIUM\GLYCERIN [Concomitant]
     Active Substance: CARBOXYMETHYLCELLULOSE SODIUM\GLYCERIN
     Indication: Product used for unknown indication
     Route: 065
  71. OCULOTECT [Concomitant]
     Indication: Product used for unknown indication
     Route: 065
  72. SULFAGUANIDIN [Concomitant]
     Indication: Product used for unknown indication
     Route: 065
  73. CIKATRIDINA [Concomitant]
     Indication: Product used for unknown indication
     Route: 065
  74. TRENTAL [Concomitant]
     Active Substance: PENTOXIFYLLINE
     Indication: Product used for unknown indication
     Route: 065
  75. VITAMIN B6 [Concomitant]
     Active Substance: PYRIDOXINE HYDROCHLORIDE
     Indication: Product used for unknown indication
     Route: 065
  76. VITAMIN B6 [Concomitant]
     Active Substance: PYRIDOXINE HYDROCHLORIDE
     Indication: Product used for unknown indication
  77. DIPROPHOS [Concomitant]
     Active Substance: BETAMETHASONE DIPROPIONATE\BETAMETHASONE SODIUM PHOSPHATE
     Indication: Product used for unknown indication
     Route: 065
  78. HUMALAC A [Concomitant]
     Indication: Product used for unknown indication
     Route: 065

REACTIONS (55)
  - Encephalopathy [Unknown]
  - Abdominal distension [Unknown]
  - Pelvic pain [Unknown]
  - Somnolence [Unknown]
  - Muscle spasms [Unknown]
  - Diarrhoea [Unknown]
  - Immune system disorder [Unknown]
  - Lacrimation increased [Unknown]
  - Abdominal pain [Unknown]
  - Dysgeusia [Unknown]
  - Vision blurred [Unknown]
  - Conjunctivitis [Unknown]
  - Eye irritation [Unknown]
  - Ocular hyperaemia [Unknown]
  - Seasonal allergy [Unknown]
  - Tinnitus [Unknown]
  - Eye pain [Unknown]
  - Dyspepsia [Unknown]
  - Headache [Unknown]
  - Erythema [Unknown]
  - Asthenia [Unknown]
  - Bone pain [Unknown]
  - Constipation [Unknown]
  - Hypoaesthesia oral [Unknown]
  - Taste disorder [Unknown]
  - Peripheral swelling [Unknown]
  - Pruritus [Unknown]
  - Pain in extremity [Unknown]
  - Nausea [Unknown]
  - Agitation [Unknown]
  - Fatigue [Unknown]
  - Dyspnoea [Unknown]
  - Cyst [Unknown]
  - Joint swelling [Unknown]
  - Renal disorder [Unknown]
  - Palpitations [Unknown]
  - Urinary incontinence [Unknown]
  - Heart rate increased [Unknown]
  - Nightmare [Unknown]
  - Feeling abnormal [Unknown]
  - Personality disorder [Unknown]
  - Arthropod sting [Unknown]
  - Secretion discharge [Unknown]
  - Adverse drug reaction [Unknown]
  - Visual impairment [Unknown]
  - Eye swelling [Unknown]
  - Abdominal pain upper [Unknown]
  - Swelling of eyelid [Unknown]
  - Eye pruritus [Unknown]
  - Decreased appetite [Unknown]
  - Hypersensitivity [Unknown]
  - Toxicity to various agents [Unknown]
  - Dizziness [Unknown]
  - Myalgia [Unknown]
  - Discharge [Unknown]
